FAERS Safety Report 7677918-X (Version None)
Quarter: 2011Q3

REPORT INFORMATION
  Report Type: 
  Country: None (occurrence: None)
  Receive Date: 20110811
  Receipt Date: 20110731
  Transmission Date: 20111222
  Serious: Yes (Other)
  Sender: FDA-Public Use
  Company Number: IL-ALEXION PHARMACEUTICALS INC.-A201101194

PATIENT
  Sex: Male

DRUGS (14)
  1. SOLIRIS [Suspect]
     Indication: HAEMOLYTIC URAEMIC SYNDROME
     Dosage: 600 MG DAY 0,1,7
     Route: 042
     Dates: start: 20110124, end: 20110131
  2. SODIUM BICARBONATE [Concomitant]
     Indication: METABOLIC ACIDOSIS
     Dosage: 200 MG TID
     Route: 048
     Dates: start: 20110201
  3. TRIMETHOPRIM + SULFAMETHOXAZOLE [Concomitant]
     Indication: ANTIFUNGAL PROPHYLAXIS
     Dosage: 0.5 TAB X3/WEEK
     Route: 048
     Dates: start: 20110125
  4. PREDNISONE [Concomitant]
     Indication: TRANSPLANT REJECTION
     Dosage: 5 MG QD
     Route: 048
     Dates: start: 20110125
  5. NIFEDIPINE [Concomitant]
     Indication: HYPERTENSION
     Dosage: 5 MG BID
     Route: 048
     Dates: start: 20110301
  6. ATENOLOL [Concomitant]
     Indication: HYPERTENSION
     Dosage: 12.5 MG QD
     Route: 048
     Dates: start: 20110301
  7. SOLIRIS [Suspect]
     Dosage: 600 MG Q 14 DAYS
     Route: 042
     Dates: start: 20110207
  8. FUROSEMIDE [Concomitant]
     Indication: FLUID RETENTION
     Dosage: 20 MG BID
     Route: 048
     Dates: start: 20110301
  9. TACROLIMUS [Suspect]
     Indication: TRANSPLANT REJECTION
     Dosage: 4.5 MG BID
     Route: 048
     Dates: start: 20110126
  10. OMEPRAZOLE [Concomitant]
     Indication: PROPHYLAXIS
     Dosage: 20 MG QD
     Route: 048
     Dates: start: 20110125
  11. MYCOPHENOLATE MOFETIL [Suspect]
     Indication: TRANSPLANT REJECTION
     Dosage: 100 MG BID
     Route: 048
     Dates: start: 20110125
  12. LAMIVUDINE [Concomitant]
     Indication: ANTIVIRAL PROPHYLAXIS
     Dosage: 25 MG QD
     Route: 048
     Dates: start: 20110125
  13. CARBAMAZEPINE [Suspect]
     Indication: CONVULSION
     Dosage: 200 MG BID
     Route: 048
     Dates: start: 20071201
  14. SALICYLIC ACID [Concomitant]
     Dosage: 75 MG QD
     Route: 048
     Dates: start: 20110125

REACTIONS (2)
  - LIVER FUNCTION TEST ABNORMAL [None]
  - LYMPHOPENIA [None]
